FAERS Safety Report 21285512 (Version 1)
Quarter: 2022Q3

REPORT INFORMATION
  Report Type: Spontaneous
  Country: CN (occurrence: None)
  Receive Date: 20220902
  Receipt Date: 20220902
  Transmission Date: 20221026
  Serious: Yes (Hospitalization)
  Sender: FDA-Public Use
  Company Number: 2022A301742

PATIENT
  Age: 79 Year
  Sex: Female
  Weight: 55 kg

DRUGS (1)
  1. OSIMERTINIB MESYLATE [Suspect]
     Active Substance: OSIMERTINIB MESYLATE
     Indication: Drug therapy
     Route: 048
     Dates: start: 20220512, end: 20220721

REACTIONS (1)
  - Gastroenteritis [Recovering/Resolving]

NARRATIVE: CASE EVENT DATE: 20220705
